FAERS Safety Report 8471373-8 (Version None)
Quarter: 2012Q2

REPORT INFORMATION
  Report Type: 
  Country: None (occurrence: None)
  Receive Date: 20120627
  Receipt Date: 20120622
  Transmission Date: 20120825
  Serious: Yes (Death)
  Sender: FDA-Public Use
  Company Number: AT-ASTRAZENECA-2012SE41290

PATIENT

DRUGS (2)
  1. METOPROLOL TARTRATE [Suspect]
     Route: 042
  2. BUPIVACAINE HCL [Suspect]
     Route: 051

REACTIONS (1)
  - CIRCUMSTANCE OR INFORMATION CAPABLE OF LEADING TO MEDICATION ERROR [None]
